FAERS Safety Report 19471978 (Version 1)
Quarter: 2021Q2

REPORT INFORMATION
  Report Type: Spontaneous
  Country: IN (occurrence: IN)
  Receive Date: 20210629
  Receipt Date: 20210629
  Transmission Date: 20210717
  Serious: Yes (Life-Threatening, Hospitalization, Other)
  Sender: FDA-Public Use
  Company Number: IN-ALKEM LABORATORIES LIMITED-IN-ALKEM-2021-04008

PATIENT
  Age: 8 Year
  Sex: Female
  Weight: 22 kg

DRUGS (1)
  1. PREGABALIN. [Suspect]
     Active Substance: PREGABALIN
     Indication: ANXIETY DISORDER
     Dosage: 15 DOSAGE FORM
     Route: 065

REACTIONS (8)
  - Vomiting [Unknown]
  - Hypoglycaemia [Unknown]
  - Sinus tachycardia [Unknown]
  - Nausea [Unknown]
  - Encephalopathy [Recovering/Resolving]
  - Abdominal pain [Unknown]
  - Accidental overdose [Unknown]
  - Toxicity to various agents [Unknown]
